FAERS Safety Report 5694841-0 (Version None)
Quarter: 2008Q2

REPORT INFORMATION
  Report Type: 
  Country: None (occurrence: None)
  Receive Date: 20080404
  Receipt Date: 20080327
  Transmission Date: 20081010
  Serious: Yes (Hospitalization)
  Sender: FDA-Public Use
  Company Number: GR-AVENTIS-200810043GDDC

PATIENT
  Age: 77 Year
  Sex: Female

DRUGS (3)
  1. ARAVA [Suspect]
     Indication: RHEUMATOID ARTHRITIS
     Route: 048
     Dates: start: 20071127, end: 20071218
  2. ANTIBIOTICS [Concomitant]
     Dosage: DOSE: UNK
     Dates: end: 20071221
  3. PREDNISOLONE [Concomitant]
     Route: 048
     Dates: end: 20071221

REACTIONS (6)
  - ARRHYTHMIA [None]
  - ATRIAL FIBRILLATION [None]
  - CONDITION AGGRAVATED [None]
  - DIARRHOEA [None]
  - RASH [None]
  - REFUSAL OF TREATMENT BY PATIENT [None]
